FAERS Safety Report 5424479-1 (Version None)
Quarter: 2007Q3

REPORT INFORMATION
  Report Type: 
  Country: None (occurrence: None)
  Receive Date: 20070731
  Receipt Date: 20070402
  Transmission Date: 20080115
  Serious: No
  Sender: FDA-Public Use
  Company Number: US200704000839

PATIENT
  Age: 56 Year
  Sex: Female
  Weight: 126.5 kg

DRUGS (4)
  1. BYETTA [Suspect]
     Indication: TYPE 2 DIABETES MELLITUS
     Dosage: 5 UG, 2/D, SUBCUTANEOUS
     Route: 058
     Dates: start: 20070331
  2. EXENATIDE [Concomitant]
  3. GLUCOTROL [Concomitant]
  4. GLUCOPHAGE [Concomitant]

REACTIONS (4)
  - DECREASED APPETITE [None]
  - EARLY SATIETY [None]
  - FEELING ABNORMAL [None]
  - FEELING JITTERY [None]
